FAERS Safety Report 7520983-0 (Version None)
Quarter: 2011Q2

REPORT INFORMATION
  Report Type: 
  Country: None (occurrence: None)
  Receive Date: 20110603
  Receipt Date: 20101006
  Transmission Date: 20111010
  Serious: Yes (Hospitalization)
  Sender: FDA-Public Use
  Company Number: US-BAYER-201015581NA

PATIENT
  Age: 37 Year
  Sex: Female
  Weight: 59.091 kg

DRUGS (23)
  1. AMOXICILLIN [Concomitant]
     Dates: start: 20060101
  2. TOPAMAX [Concomitant]
  3. VITAMIN B-12 [Concomitant]
  4. PENICILLIN [Concomitant]
     Dates: start: 20080101
  5. NEURONTIN [Concomitant]
  6. AMOXICILLIN [Concomitant]
     Dates: start: 20080101
  7. METRONIDAZOLE [Concomitant]
  8. VITAMIN TAB [Concomitant]
  9. PENICILLIN [Concomitant]
     Dates: start: 20070101
  10. SYNTHROID [Concomitant]
     Dosage: UNK
     Dates: start: 20061101
  11. CHLORHEXIDINE GLUCONATE [Concomitant]
  12. VICODIN ES [Concomitant]
  13. OMEGA 3 FATTY ACIDS [Concomitant]
  14. FOLIC ACID [Concomitant]
  15. PENICILLIN [Concomitant]
     Dates: start: 20060101
  16. PENICILLIN VK [Concomitant]
  17. COMBUNOX [Concomitant]
  18. CYTOMEL [Concomitant]
  19. CLINDAMYCIN HCL [Concomitant]
  20. YAZ [Suspect]
     Indication: CEREBROVASCULAR ACCIDENT
     Route: 048
     Dates: start: 20070301, end: 20070405
  21. AMOXICILLIN [Concomitant]
     Dates: start: 20070101
  22. AMOXICILLIN [Concomitant]
  23. ASPIRIN [Concomitant]

REACTIONS (4)
  - HYPOAESTHESIA [None]
  - HEMIPARESIS [None]
  - ALLODYNIA [None]
  - CEREBROVASCULAR ACCIDENT [None]
